FAERS Safety Report 5049212-7 (Version None)
Quarter: 2006Q3

REPORT INFORMATION
  Report Type: 
  Country: None (occurrence: None)
  Receive Date: 20060706
  Receipt Date: 20060621
  Transmission Date: 20061208
  Serious: Yes (Hospitalization)
  Sender: FDA-Public Use
  Company Number: TCI2006A02269

PATIENT
  Age: 75 Year
  Sex: Male

DRUGS (4)
  1. ACTOS [Suspect]
     Indication: DIABETES MELLITUS NON-INSULIN-DEPENDENT
     Dosage: 15 MG (15 MG, 1 IN 1 D)
     Route: 048
     Dates: start: 20060118, end: 20060512
  2. PRAVASTATIN [Concomitant]
     Route: 048
  3. NORVASC [Concomitant]
     Route: 048
  4. MICARDIS [Concomitant]
     Route: 048

REACTIONS (5)
  - ASCITES [None]
  - GENERALISED OEDEMA [None]
  - LIVER DISORDER [None]
  - PLEURAL EFFUSION [None]
  - WEIGHT INCREASED [None]
